FAERS Safety Report 4634600-0 (Version None)
Quarter: 2005Q2

REPORT INFORMATION
  Report Type: 
  Country: None (occurrence: None)
  Receive Date: 20050413
  Receipt Date: 20050329
  Transmission Date: 20051028
  Serious: Yes (Hospitalization)
  Sender: FDA-Public Use
  Company Number: 2005052152

PATIENT
  Age: 60 Year
  Sex: Female
  Weight: 48 kg

DRUGS (5)
  1. DAXID (SERTRALINE) [Suspect]
     Indication: DEPRESSION
     Dosage: (50 MG), ORAL
     Route: 048
     Dates: start: 20050323, end: 20050324
  2. ALL OTHER THERAPEUTIC PRODUCTS (ALL OTHER THERAPEUTIC PRODUCTS) [Concomitant]
  3. NEUROTRAT S FORTE (PYRIDOXINE HYDROCHLORIDE, THIAMINE MONONITRATE) [Concomitant]
  4. NICOTINAMIDE (NICOTINAMIDE) [Concomitant]
  5. PANTOTHENATE SODIUM (PANTOTHENATE SODIUM) [Concomitant]

REACTIONS (2)
  - BURNING SENSATION [None]
  - RESTLESSNESS [None]
